FAERS Safety Report 11679282 (Version 2)
Quarter: 2015Q4

REPORT INFORMATION
  Report Type: Spontaneous
  Country: US (occurrence: US)
  Receive Date: 20151027
  Receipt Date: 20151104
  Transmission Date: 20160304
  Serious: No
  Sender: FDA-Public Use
  Company Number: US-ELI_LILLY_AND_COMPANY-US201006005273

PATIENT
  Sex: Female
  Weight: 64.85 kg

DRUGS (1)
  1. FORTEO [Suspect]
     Active Substance: TERIPARATIDE
     Indication: OSTEOPOROSIS

REACTIONS (5)
  - Injection site bruising [Unknown]
  - Weight decreased [Unknown]
  - Vision blurred [Unknown]
  - Dizziness [Unknown]
  - Injection site pain [Unknown]
